FAERS Safety Report 13381296 (Version 1)
Quarter: 2017Q1

REPORT INFORMATION
  Report Type: Report from Study
  Country: US (occurrence: US)
  Receive Date: 20170329
  Receipt Date: 20170329
  Transmission Date: 20170429
  Serious: Yes (Other)
  Sender: FDA-Public Use
  Company Number: US-ROCHE-1830008

PATIENT
  Sex: Female
  Weight: 61.29 kg

DRUGS (1)
  1. LUCENTIS [Suspect]
     Active Substance: RANIBIZUMAB
     Indication: NEOVASCULAR AGE-RELATED MACULAR DEGENERATION
     Route: 050

REACTIONS (5)
  - Memory impairment [Unknown]
  - Cerebral disorder [Unknown]
  - Bladder cancer [Recovered/Resolved]
  - Malignant melanoma [Recovered/Resolved]
  - Breast cancer [Recovered/Resolved]
